FAERS Safety Report 4512852-5 (Version None)
Quarter: 2004Q4

REPORT INFORMATION
  Report Type: 
  Country: None (occurrence: None)
  Receive Date: 20041119
  Receipt Date: 20041119
  Transmission Date: 20050328
  Serious: Yes (Hospitalization)
  Sender: FDA-Public Use
  Company Number: None

PATIENT
  Age: 31 Year
  Sex: Male
  Weight: 93.8946 kg

DRUGS (1)
  1. PAXIL CR [Suspect]
     Dosage: 25 MG    SINGLE DOSE     ORAL
     Route: 048
     Dates: start: 20041031, end: 20041031

REACTIONS (1)
  - APPENDICITIS [None]
